FAERS Safety Report 21936421 (Version 1)
Quarter: 2023Q1

REPORT INFORMATION
  Report Type: Spontaneous
  Country: US (occurrence: US)
  Receive Date: 20230201
  Receipt Date: 20230201
  Transmission Date: 20230417
  Serious: No
  Sender: FDA-Public Use
  Company Number: US-INCYTE CORPORATION-2020IN009385

PATIENT

DRUGS (6)
  1. PEMAZYRE [Suspect]
     Active Substance: PEMIGATINIB
     Indication: Cholangiocarcinoma
     Dosage: 13.5 MILLIGRAM, 2 WEEKS ON/1WEEK OFF (1ST CYCLE)
     Route: 065
     Dates: start: 20200729
  2. PEMAZYRE [Suspect]
     Active Substance: PEMIGATINIB
     Indication: Gene mutation
     Dosage: 13.5 MILLIGRAM, 2 WEEKS ON/1WEEK OFF (2ND CYCLE)
     Route: 065
  3. GEMCITABINE [Concomitant]
     Active Substance: GEMCITABINE
     Indication: Cholangiocarcinoma
     Route: 065
  4. GEMCITABINE [Concomitant]
     Active Substance: GEMCITABINE
     Indication: Gene mutation
  5. CISPLATIN [Concomitant]
     Active Substance: CISPLATIN
     Indication: Cholangiocarcinoma
     Route: 065
  6. CISPLATIN [Concomitant]
     Active Substance: CISPLATIN
     Indication: Gene mutation

REACTIONS (4)
  - Cutaneous calcification [Unknown]
  - Hypercalcaemia [Unknown]
  - Nodule [Unknown]
  - Hyperphosphataemia [Recovering/Resolving]

NARRATIVE: CASE EVENT DATE: 20200831
